FAERS Safety Report 8003176-2 (Version None)
Quarter: 2011Q4

REPORT INFORMATION
  Report Type: 
  Country: None (occurrence: None)
  Receive Date: 20111222
  Receipt Date: 20111213
  Transmission Date: 20120403
  Serious: Yes (Other)
  Sender: FDA-Public Use
  Company Number: PHHY2011JP109794

PATIENT

DRUGS (1)
  1. NEORAL [Suspect]
     Dosage: 50 MG, UNK
     Route: 048

REACTIONS (1)
  - CEREBRAL INFARCTION [None]
